FAERS Safety Report 4959358-7 (Version None)
Quarter: 2006Q1

REPORT INFORMATION
  Report Type: 
  Country: None (occurrence: None)
  Receive Date: 20060331
  Receipt Date: 20060327
  Transmission Date: 20060701
  Serious: Yes (Death, Other)
  Sender: FDA-Public Use
  Company Number: 2006AC00554

PATIENT
  Age: 76 Year
  Sex: Male

DRUGS (1)
  1. GOSERELIN [Suspect]
     Indication: PROSTATE CANCER
     Dosage: 3 TIMES IN HALF A YEAR
     Route: 058

REACTIONS (4)
  - MOTOR DYSFUNCTION [None]
  - MUSCULAR WEAKNESS [None]
  - NEURALGIA [None]
  - PNEUMONIA [None]
